FAERS Safety Report 8067333-1 (Version None)
Quarter: 2012Q1

REPORT INFORMATION
  Report Type: 
  Country: None (occurrence: None)
  Receive Date: 20120124
  Receipt Date: 20120117
  Transmission Date: 20120608
  Serious: Yes (Congenital Anomaly)
  Sender: FDA-Public Use
  Company Number: FR-GLAXOSMITHKLINE-B0775935B

PATIENT
  Sex: Male

DRUGS (2)
  1. TEGRETOL [Suspect]
     Indication: EPILEPSY
     Route: 064
  2. LAMICTAL [Suspect]
     Indication: EPILEPSY
     Route: 064

REACTIONS (5)
  - FOETAL EXPOSURE DURING PREGNANCY [None]
  - CLEFT PALATE [None]
  - HYPOTONIA [None]
  - PSYCHOMOTOR RETARDATION [None]
  - PARTIAL SEIZURES [None]
